FAERS Safety Report 17139103 (Version 1)
Quarter: 2019Q4

REPORT INFORMATION
  Report Type: Spontaneous
  Country: SE (occurrence: SE)
  Receive Date: 20191211
  Receipt Date: 20191211
  Transmission Date: 20200122
  Serious: Yes (Hospitalization)
  Sender: FDA-Public Use
  Company Number: SE-TEVA-2019-SE-1148962

PATIENT
  Age: 28 Year
  Sex: Female
  Weight: 65 kg

DRUGS (2)
  1. OXASCAND [Suspect]
     Active Substance: OXAZEPAM
     Route: 048
     Dates: start: 20180914, end: 20180914
  2. LERGIGAN (PROMETHAZINE HYDROCHLORIDE) [Suspect]
     Active Substance: PROMETHAZINE HYDROCHLORIDE
     Dosage: ^100 MG LERGIGAN OR SAYS 10 TABLETS AT 25 MG SO 250 MG^
     Route: 048
     Dates: start: 20180914, end: 20180914

REACTIONS (3)
  - Head titubation [Unknown]
  - Intentional overdose [Unknown]
  - Intentional self-injury [Unknown]

NARRATIVE: CASE EVENT DATE: 20180914
